FAERS Safety Report 20059253 (Version 2)
Quarter: 2021Q4

REPORT INFORMATION
  Report Type: Spontaneous
  Country: BR (occurrence: BR)
  Receive Date: 20211111
  Receipt Date: 20211122
  Transmission Date: 20220303
  Serious: Yes (Hospitalization, Other)
  Sender: FDA-Public Use
  Company Number: BR-009507513-2111BRA003020

PATIENT
  Age: 35 Year
  Sex: Male

DRUGS (3)
  1. CUBICIN [Suspect]
     Active Substance: DAPTOMYCIN
     Dosage: 400 MILLIGRAM (MG) 1 PER DAY; APPLY 1 VIAL, 1 TIME A DAY, FOR 30 DAYS, CRIERTATION: DILUET 100 ML AN
     Route: 042
     Dates: start: 20191113, end: 20191114
  2. GABAPENTIN [Concomitant]
     Active Substance: GABAPENTIN
     Dosage: 800 MILLIGRAM (MG) 3 PER 8 HOUR
  3. RIFAMPIN [Concomitant]
     Active Substance: RIFAMPIN
     Dosage: 300 MILLIGRAM (MG) 2 PER 12 HOURS

REACTIONS (6)
  - Pruritus [Recovered/Resolved]
  - Dizziness [Unknown]
  - Vision blurred [Unknown]
  - Discomfort [Recovered/Resolved]
  - Hyperhidrosis [Recovered/Resolved]
  - Dysphagia [Recovered/Resolved]

NARRATIVE: CASE EVENT DATE: 20191114
